FAERS Safety Report 8949883 (Version 3)
Quarter: 2015Q1

REPORT INFORMATION
  Report Type: Report from Study
  Country: FR (occurrence: FR)
  Receive Date: 20121206
  Receipt Date: 20150216
  Transmission Date: 20150721
  Serious: Yes (Other)
  Sender: FDA-Public Use
  Company Number: FR-PFIZER INC-2012299909

PATIENT
  Age: 57 Year
  Sex: Female
  Weight: 100 kg

DRUGS (7)
  1. LYRICA [Concomitant]
     Active Substance: PREGABALIN
     Indication: NEURALGIA
  2. ARACYTINE [Suspect]
     Active Substance: CYTARABINE
     Dosage: 1900 MG A DAY, 2ND CONSOLIDATION CYCLE
     Route: 042
     Dates: start: 20090209
  3. DAUNORUBICIN [Suspect]
     Active Substance: DAUNORUBICIN
     Dosage: 115 MG A DAY, 1ST CONSOLIDATION CYCLE
     Route: 042
     Dates: start: 20081229
  4. DAUNORUBICIN [Suspect]
     Active Substance: DAUNORUBICIN
     Dosage: 115 MG A DAY, 2ND CONSOLIDATION CYCLE
     Route: 042
     Dates: start: 20090209
  5. ARACYTINE [Suspect]
     Active Substance: CYTARABINE
     Indication: ACUTE MYELOID LEUKAEMIA
     Dosage: 1900 MG A DAY, INDUCTION CYCLE
     Route: 042
     Dates: start: 200811
  6. DAUNORUBICIN [Suspect]
     Active Substance: DAUNORUBICIN
     Indication: ACUTE MYELOID LEUKAEMIA
     Dosage: 115 MG A DAY, INDUCTION CYCLE
     Route: 042
     Dates: start: 200811
  7. ARACYTINE [Suspect]
     Active Substance: CYTARABINE
     Dosage: 1900 MG A DAY, 1ST CONSOLIDATION CYCLE
     Route: 042
     Dates: start: 20081229

REACTIONS (2)
  - Febrile bone marrow aplasia [Recovered/Resolved]
  - Herpes zoster [Recovered/Resolved]

NARRATIVE: CASE EVENT DATE: 20090220
